FAERS Safety Report 10017922 (Version 1)
Quarter: 2014Q1

REPORT INFORMATION
  Report Type: Spontaneous
  Country: US (occurrence: US)
  Receive Date: 20140318
  Receipt Date: 20140318
  Transmission Date: 20141002
  Serious: Yes (Death)
  Sender: FDA-Public Use
  Company Number: US-BRISTOL-MYERS SQUIBB COMPANY-18871111

PATIENT
  Age: 63 Year
  Sex: Female

DRUGS (2)
  1. ERBITUX [Suspect]
     Indication: COLON CANCER
     Dosage: 21NOV12, 10DEC12 AND 27DEC12
     Dates: start: 20111220
  2. CAMPTOSAR [Suspect]
     Indication: COLON CANCER
     Dosage: 21NOV12, 10DEC12 AND 27DEC12
     Route: 042
     Dates: start: 20111220

REACTIONS (1)
  - Malignant neoplasm progression [Fatal]
